FAERS Safety Report 23973760 (Version 6)
Quarter: 2025Q1

REPORT INFORMATION
  Report Type: Report from Study
  Country: JP (occurrence: JP)
  Receive Date: 20240613
  Receipt Date: 20250321
  Transmission Date: 20250408
  Serious: Yes (Death)
  Sender: SHIONOGI
  Company Number: JP-shionogi-202404394_FTR_P_1

PATIENT
  Age: 85 Year
  Sex: Female
  Weight: 32.4 kg

DRUGS (2)
  1. CEFIDEROCOL [Suspect]
     Active Substance: CEFIDEROCOL
     Indication: Pneumonia
     Route: 041
     Dates: start: 20240528, end: 20240607
  2. ONEPAL NO.2 [Concomitant]
     Indication: Pneumonia
     Route: 065

REACTIONS (1)
  - Pneumonia [Fatal]

NARRATIVE: CASE EVENT DATE: 20240609
